FAERS Safety Report 4854522-X (Version None)
Quarter: 2005Q4

REPORT INFORMATION
  Report Type: 
  Country: None (occurrence: None)
  Receive Date: 20051213
  Receipt Date: 20051130
  Transmission Date: 20060501
  Serious: Yes (Other)
  Sender: FDA-Public Use
  Company Number: 2005163206

PATIENT
  Age: 39 Year
  Sex: Female

DRUGS (3)
  1. DEPO-PROVERA [Suspect]
     Indication: CONTRACEPTION
     Dosage: 50 MG (50 MG FIRST INJECTION SINGLE MONTHLY) INTRAMUSCULAR 50 MG (50 MG SECOND INJECTION) INTRAMUSCU
     Route: 030
     Dates: start: 20050916, end: 20050916
  2. DEPO-PROVERA [Suspect]
     Indication: CONTRACEPTION
     Dosage: 50 MG (50 MG FIRST INJECTION SINGLE MONTHLY) INTRAMUSCULAR 50 MG (50 MG SECOND INJECTION) INTRAMUSCU
     Route: 030
     Dates: start: 20051019, end: 20051019
  3. TENORETIC 100 [Concomitant]

REACTIONS (3)
  - AMENORRHOEA [None]
  - BLOOD PRESSURE INCREASED [None]
  - WEIGHT INCREASED [None]
